FAERS Safety Report 25346408 (Version 2)
Quarter: 2025Q2

REPORT INFORMATION
  Report Type: Report from Study
  Country: JP (occurrence: JP)
  Receive Date: 20250522
  Receipt Date: 20250527
  Transmission Date: 20250717
  Serious: Yes (Hospitalization)
  Sender: EISAI
  Company Number: JP-Eisai-EC-2025-189598

PATIENT
  Age: 73 Year
  Sex: Female

DRUGS (15)
  1. LENVATINIB [Suspect]
     Active Substance: LENVATINIB
     Indication: Angiosarcoma
     Dates: start: 20250410, end: 20250423
  2. LENVATINIB [Suspect]
     Active Substance: LENVATINIB
     Dates: start: 20250501, end: 20250502
  3. LENVATINIB [Suspect]
     Active Substance: LENVATINIB
     Dates: start: 20250505, end: 20250513
  4. LENVATINIB [Suspect]
     Active Substance: LENVATINIB
     Dates: start: 20250522
  5. PEMBROLIZUMAB [Suspect]
     Active Substance: PEMBROLIZUMAB
     Indication: Angiosarcoma
     Dates: start: 20250410
  6. LOXOPROFEN SODIUM DIHYDRATE [Concomitant]
     Active Substance: LOXOPROFEN SODIUM DIHYDRATE
  7. ACETAMINOPHEN [Concomitant]
     Active Substance: ACETAMINOPHEN
  8. METRONIDAZOLE [Concomitant]
     Active Substance: METRONIDAZOLE
  9. FEXOFENADINE HYDROCHLORIDE [Concomitant]
     Active Substance: FEXOFENADINE HYDROCHLORIDE
  10. HYDROCORTISONE BUTYRATE [Concomitant]
     Active Substance: HYDROCORTISONE BUTYRATE
  11. AMLODIPINE BESYLATE [Concomitant]
     Active Substance: AMLODIPINE BESYLATE
  12. METHYLCOBALAMIN [Concomitant]
     Active Substance: METHYLCOBALAMIN
  13. SONO [Concomitant]
     Active Substance: ALCOHOL
  14. LANSOPRAZOLE [Concomitant]
     Active Substance: LANSOPRAZOLE
  15. GLO SODIUM HYALURONATE [Concomitant]

REACTIONS (1)
  - Platelet count decreased [Recovered/Resolved]

NARRATIVE: CASE EVENT DATE: 20250515
